FAERS Safety Report 22522860 (Version 3)
Quarter: 2024Q1

REPORT INFORMATION
  Report Type: Spontaneous
  Country: FR (occurrence: FR)
  Receive Date: 20230605
  Receipt Date: 20240102
  Transmission Date: 20240410
  Serious: Yes (Other)
  Sender: FDA-Public Use
  Company Number: FR-CELLTRION INC.-2023FR011137

PATIENT

DRUGS (10)
  1. INFLIXIMAB [Suspect]
     Active Substance: INFLIXIMAB
     Indication: Multicentric reticulohistiocytosis
     Dosage: UNKNOWN
     Route: 065
  2. ADALIMUMAB [Suspect]
     Active Substance: ADALIMUMAB\ISOPROPYL ALCOHOL
     Indication: Multicentric reticulohistiocytosis
     Dosage: UNKNOWN
     Route: 065
  3. ADALIMUMAB [Suspect]
     Active Substance: ADALIMUMAB\ISOPROPYL ALCOHOL
     Indication: Juvenile idiopathic arthritis
  4. ABATACEPT [Suspect]
     Active Substance: ABATACEPT
     Indication: Multicentric reticulohistiocytosis
     Dosage: UNKNOWN
     Route: 042
  5. ETANERCEPT [Suspect]
     Active Substance: ETANERCEPT
     Indication: Multicentric reticulohistiocytosis
     Dosage: UNKNOWN
     Route: 065
  6. ETANERCEPT [Suspect]
     Active Substance: ETANERCEPT
     Indication: Juvenile idiopathic arthritis
  7. TOCILIZUMAB [Suspect]
     Active Substance: TOCILIZUMAB
     Indication: Multicentric reticulohistiocytosis
     Dosage: UNKNOWN
     Route: 042
  8. ZOLEDRONIC ACID [Concomitant]
     Active Substance: ZOLEDRONIC ACID
     Indication: Multicentric reticulohistiocytosis
     Dosage: UNKNOWN
     Route: 065
  9. METHOTREXATE SODIUM [Concomitant]
     Active Substance: METHOTREXATE SODIUM
     Indication: Multicentric reticulohistiocytosis
     Dosage: UNKNOWN
     Route: 065
  10. METHOTREXATE SODIUM [Concomitant]
     Active Substance: METHOTREXATE SODIUM
     Indication: Juvenile idiopathic arthritis
     Dosage: UNKNOWN

REACTIONS (21)
  - Eosinophilia [Unknown]
  - Condition aggravated [Unknown]
  - Juvenile idiopathic arthritis [Unknown]
  - Multicentric reticulohistiocytosis [Recovering/Resolving]
  - Dermatitis allergic [Unknown]
  - Interstitial lung disease [Recovering/Resolving]
  - Appendicitis [Unknown]
  - Pulmonary fibrosis [Unknown]
  - Arthritis bacterial [Unknown]
  - Infection [Unknown]
  - Hypersensitivity [Unknown]
  - Arthropathy [Recovered/Resolved]
  - Pulmonary mass [Unknown]
  - Pleural disorder [Unknown]
  - Arthritis [Unknown]
  - Lung disorder [Unknown]
  - Weight decreased [Unknown]
  - Fatigue [Unknown]
  - Herpes zoster [Unknown]
  - Rash [Unknown]
  - Off label use [Unknown]
